FAERS Safety Report 4881533-0 (Version None)
Quarter: 2006Q1

REPORT INFORMATION
  Report Type: 
  Country: None (occurrence: None)
  Receive Date: 20060116
  Receipt Date: 20060102
  Transmission Date: 20060701
  Serious: Yes (Hospitalization)
  Sender: FDA-Public Use
  Company Number: SE-GLAXOSMITHKLINE-B0405521A

PATIENT
  Age: 39 Year
  Sex: Male

DRUGS (4)
  1. LANVIS [Suspect]
     Dosage: 40MG TWICE PER DAY
     Route: 048
     Dates: start: 20050928, end: 20051110
  2. MONOCLONAL ANTIBODY (UNSPECIFIED) [Suspect]
     Dosage: 90ML WEEKLY
     Route: 042
     Dates: start: 20050706, end: 20051110
  3. ALVEDON [Concomitant]
  4. VOLTAREN [Concomitant]

REACTIONS (7)
  - DIFFICULTY IN WALKING [None]
  - EXFOLIATIVE RASH [None]
  - MUSCLE RIGIDITY [None]
  - PAIN [None]
  - PSORIASIS [None]
  - PYREXIA [None]
  - SKIN DISORDER [None]
